FAERS Safety Report 4719179-7 (Version None)
Quarter: 2005Q3

REPORT INFORMATION
  Report Type: 
  Country: None (occurrence: None)
  Receive Date: 20050720
  Receipt Date: 20050706
  Transmission Date: 20060218
  Serious: Yes (Death, Other)
  Sender: FDA-Public Use
  Company Number: JP_050707036

PATIENT
  Age: 75 Year
  Sex: Male

DRUGS (3)
  1. GEMZAR [Suspect]
     Indication: LUNG ADENOCARCINOMA
  2. CARBOPLATIN [Concomitant]
  3. ADENOCARCINOMA [Concomitant]

REACTIONS (4)
  - LUNG ADENOCARCINOMA [None]
  - LUNG CONSOLIDATION [None]
  - MALIGNANT NEOPLASM PROGRESSION [None]
  - PULMONARY ALVEOLAR HAEMORRHAGE [None]
